FAERS Safety Report 14402916 (Version 1)
Quarter: 2018Q1

REPORT INFORMATION
  Report Type: Spontaneous
  Country: JP (occurrence: JP)
  Receive Date: 20180117
  Receipt Date: 20180117
  Transmission Date: 20180509
  Serious: Yes (Hospitalization)
  Sender: FDA-Public Use
  Company Number: JP-PFIZER INC-2018020359

PATIENT

DRUGS (2)
  1. CELECOX [Suspect]
     Active Substance: CELECOXIB
     Dosage: UNK
     Route: 065
  2. WARFARIN /00014803/ [Concomitant]
     Active Substance: WARFARIN
     Dosage: UNK
     Route: 048

REACTIONS (2)
  - International normalised ratio increased [Unknown]
  - Haemorrhage [Unknown]

NARRATIVE: CASE EVENT DATE: 201801
